FAERS Safety Report 20682821 (Version 1)
Quarter: 2022Q2

REPORT INFORMATION
  Report Type: Report from Study
  Country: ZA (occurrence: ZA)
  Receive Date: 20220407
  Receipt Date: 20220407
  Transmission Date: 20220721
  Serious: Yes (Other)
  Sender: FDA-Public Use
  Company Number: ZA-NOVARTISPH-NVSC2022ZA061093

PATIENT
  Age: 60 Year
  Sex: Female

DRUGS (2)
  1. COSENTYX [Suspect]
     Active Substance: SECUKINUMAB
     Indication: Psoriatic arthropathy
     Dosage: 150 MG, QMO
     Route: 058
     Dates: start: 20201214
  2. COSENTYX [Suspect]
     Active Substance: SECUKINUMAB
     Dosage: UNK
     Route: 065
     Dates: start: 20220228

REACTIONS (5)
  - Lupus-like syndrome [Not Recovered/Not Resolved]
  - Swelling face [Recovering/Resolving]
  - Pruritus [Unknown]
  - Erythema [Recovering/Resolving]
  - Skin hypertrophy [Recovering/Resolving]

NARRATIVE: CASE EVENT DATE: 20220314
